FAERS Safety Report 14760790 (Version 4)
Quarter: 2020Q2

REPORT INFORMATION
  Report Type: Spontaneous
  Country: BR (occurrence: BR)
  Receive Date: 20180414
  Receipt Date: 20200619
  Transmission Date: 20200713
  Serious: Yes (Death, Hospitalization, Other)
  Sender: FDA-Public Use
  Company Number: BR-ALEXION PHARMACEUTICALS INC.-A201405428

PATIENT
  Age: 54 Year
  Sex: Female

DRUGS (5)
  1. VALGANCICLOVIR. [Concomitant]
     Active Substance: VALGANCICLOVIR
     Indication: PRODUCT USED FOR UNKNOWN INDICATION
     Dosage: UNK, UNK
     Route: 065
  2. SOLIRIS [Suspect]
     Active Substance: ECULIZUMAB
     Indication: ATYPICAL HAEMOLYTIC URAEMIC SYNDROME
     Dosage: 1200 MG, Q2W
     Route: 042
     Dates: start: 20140401
  3. SOLIRIS [Suspect]
     Active Substance: ECULIZUMAB
     Dosage: UNK
     Route: 065
  4. CIPROFLOXACIN. [Concomitant]
     Active Substance: CIPROFLOXACIN
     Indication: PRODUCT USED FOR UNKNOWN INDICATION
     Dosage: UNK, UNK
     Route: 065
  5. SOLIRIS [Suspect]
     Active Substance: ECULIZUMAB
     Dosage: UNK
     Route: 065
     Dates: start: 20140401

REACTIONS (9)
  - Pneumonia [Fatal]
  - Oesophageal candidiasis [Unknown]
  - Pyrexia [Unknown]
  - Headache [Unknown]
  - Acute respiratory distress syndrome [Fatal]
  - Bronchospasm [Fatal]
  - Rotavirus infection [Unknown]
  - Sepsis [Fatal]
  - Odynophagia [Unknown]

NARRATIVE: CASE EVENT DATE: 20140918
